FAERS Safety Report 5402459-X (Version None)
Quarter: 2007Q3

REPORT INFORMATION
  Report Type: 
  Country: None (occurrence: None)
  Receive Date: 20070801
  Receipt Date: 20060607
  Transmission Date: 20080115
  Serious: No
  Sender: FDA-Public Use
  Company Number: A0608536A

PATIENT
  Sex: Female

DRUGS (1)
  1. IMITREX [Suspect]
     Indication: MIGRAINE
     Dosage: 100MG AS REQUIRED
     Route: 048

REACTIONS (5)
  - CHEST DISCOMFORT [None]
  - NAUSEA [None]
  - PARAESTHESIA [None]
  - PARAESTHESIA ORAL [None]
  - THROAT TIGHTNESS [None]
